FAERS Safety Report 9629217 (Version 2)
Quarter: 2013Q4

REPORT INFORMATION
  Report Type: Spontaneous
  Country: JP (occurrence: JP)
  Receive Date: 20131017
  Receipt Date: 20131031
  Transmission Date: 20140711
  Serious: Yes (Death, Hospitalization, Other)
  Sender: FDA-Public Use
  Company Number: JP-ELI_LILLY_AND_COMPANY-JP201310003423

PATIENT
  Age: 54 Year
  Sex: Female
  Weight: 51 kg

DRUGS (12)
  1. GEMZAR [Suspect]
     Indication: ADENOCARCINOMA PANCREAS
     Dosage: 1400 MG, UNK
     Route: 042
     Dates: start: 20130516, end: 20130703
  2. GEMZAR [Suspect]
     Dosage: 850 MG, UNK
     Route: 042
     Dates: start: 20130704, end: 20130911
  3. HERBESSER [Concomitant]
     Indication: ANGINA PECTORIS
     Route: 048
  4. MICARDIS [Concomitant]
     Route: 048
  5. SUNRYTHM [Concomitant]
     Indication: ARRHYTHMIA
     Route: 048
  6. VASOLAN                            /00014302/ [Concomitant]
     Indication: ARRHYTHMIA
     Route: 048
  7. SEROTONE [Concomitant]
     Indication: PROPHYLAXIS OF NAUSEA AND VOMITING
     Dosage: 10 MG, UNKNOWN
     Route: 042
     Dates: start: 20130516, end: 20130911
  8. LASIX                              /00032601/ [Concomitant]
     Indication: OEDEMA
     Dosage: 20 MG, UNKNOWN
     Route: 048
     Dates: start: 20130529, end: 20130916
  9. ALDACTONE-A [Concomitant]
     Indication: OEDEMA
     Dosage: 25 MG, UNKNOWN
     Dates: start: 20130529, end: 20130916
  10. NEXIUM                             /01479302/ [Concomitant]
     Indication: GASTRITIS PROPHYLAXIS
     Dosage: 20 MG, UNKNOWN
     Route: 048
     Dates: start: 20130529, end: 20130916
  11. LOXONIN [Concomitant]
     Indication: CANCER PAIN
     Dosage: 60 MG, TID
     Route: 048
     Dates: start: 20130529, end: 20130916
  12. BIOFERMIN R [Concomitant]
     Indication: DIARRHOEA
     Dosage: 3 DF, UNKNOWN
     Route: 048
     Dates: start: 20130529, end: 20130916

REACTIONS (12)
  - Thrombotic thrombocytopenic purpura [Fatal]
  - Haemolytic uraemic syndrome [Fatal]
  - Anaemia [Unknown]
  - Haemolysis [Unknown]
  - Pleural effusion [Unknown]
  - Oliguria [Unknown]
  - Respiratory failure [Unknown]
  - Circulatory collapse [Unknown]
  - Renal failure acute [Unknown]
  - Neutropenia [Recovered/Resolved]
  - Palpitations [Unknown]
  - Pyrexia [Unknown]
